FAERS Safety Report 11644361 (Version 1)
Quarter: 2015Q4

REPORT INFORMATION
  Report Type: Spontaneous
  Country: US (occurrence: None)
  Receive Date: 20151019
  Receipt Date: 20151019
  Transmission Date: 20160304
  Serious: Yes (Other)
  Sender: FDA-Public Use
  Company Number: None

PATIENT
  Age: 63 Year
  Sex: Male

DRUGS (2)
  1. SOVALDI [Suspect]
     Active Substance: SOFOSBUVIR
     Route: 048
     Dates: start: 20150910, end: 20151006
  2. RIBAVIRIN 200MG AUROBINDO [Suspect]
     Active Substance: RIBAVIRIN
     Route: 048
     Dates: start: 20150910, end: 20151006

REACTIONS (3)
  - Muscle spasms [None]
  - Musculoskeletal stiffness [None]
  - Chest pain [None]

NARRATIVE: CASE EVENT DATE: 20150912
